FAERS Safety Report 25283320 (Version 3)
Quarter: 2025Q2

REPORT INFORMATION
  Report Type: Spontaneous
  Country: US (occurrence: US)
  Receive Date: 20250508
  Receipt Date: 20250520
  Transmission Date: 20250716
  Serious: Yes (Hospitalization, Other)
  Sender: PFIZER
  Company Number: US-PFIZER INC-202500096496

PATIENT
  Age: 84 Year
  Sex: Female

DRUGS (17)
  1. IBRANCE [Suspect]
     Active Substance: PALBOCICLIB
     Indication: Breast cancer metastatic
     Route: 048
     Dates: start: 20250408, end: 2025
  2. IBRANCE [Suspect]
     Active Substance: PALBOCICLIB
     Route: 048
     Dates: start: 20250512
  3. FULVESTRANT [Suspect]
     Active Substance: FULVESTRANT
  4. INAVOLISIB [Suspect]
     Active Substance: INAVOLISIB
  5. ASPIRIN [Concomitant]
     Active Substance: ASPIRIN
  6. VITAMIN B COMPLEX [Concomitant]
     Active Substance: CYANOCOBALAMIN\DEXPANTHENOL\NIACINAMIDE\PYRIDOXINE HYDROCHLORIDE\RIBOFLAVIN 5^-PHOSPHATE SODIUM\THIA
  7. FAMOTIDINE [Concomitant]
     Active Substance: FAMOTIDINE
  8. ITOVEBI [Concomitant]
     Active Substance: INAVOLISIB
  9. METOPROLOL TARTRATE [Concomitant]
     Active Substance: METOPROLOL TARTRATE
  10. SUCRALFATE [Concomitant]
     Active Substance: SUCRALFATE
  11. TRIAMCINOLONE [Concomitant]
     Active Substance: TRIAMCINOLONE
  12. VITAMIN C [Concomitant]
     Active Substance: ASCORBIC ACID
  13. VITAMIN D NOS [Concomitant]
     Active Substance: CHOLECALCIFEROL\ERGOCALCIFEROL
  14. VITAMIN E [Concomitant]
     Active Substance: .ALPHA.-TOCOPHEROL
  15. CALCIUM/VITAMIN D NOS [Concomitant]
  16. TRIAMCINOLONE [Concomitant]
     Active Substance: TRIAMCINOLONE
  17. METOPROLOL [Concomitant]
     Active Substance: METOPROLOL

REACTIONS (4)
  - Acute kidney injury [Unknown]
  - Metastases to peritoneum [Unknown]
  - Fatigue [Unknown]
  - Dizziness [Unknown]

NARRATIVE: CASE EVENT DATE: 20250101
